FAERS Safety Report 21464779 (Version 1)
Quarter: 2022Q4

REPORT INFORMATION
  Report Type: Spontaneous
  Country: US (occurrence: None)
  Receive Date: 20221014
  Receipt Date: 20221014
  Transmission Date: 20230113
  Serious: No
  Sender: FDA-Public Use
  Company Number: None

PATIENT
  Sex: Female

DRUGS (1)
  1. IBRANCE [Suspect]
     Active Substance: PALBOCICLIB
     Indication: Breast cancer female
     Dosage: FREQUENCY : AS DIRECTED;? TAKE 1 TABLET BY MOUTH 1 TIME A DAY ON DAY 1 TO 21 OF A 28 DAY CYCLE;?
     Route: 048
     Dates: start: 20210921

REACTIONS (18)
  - Alopecia [None]
  - Muscle spasms [None]
  - Neutropenia [None]
  - Initial insomnia [None]
  - Decreased appetite [None]
  - Weight decreased [None]
  - Thyroid disorder [None]
  - Cognitive disorder [None]
  - Feeling abnormal [None]
  - Amnesia [None]
  - Amnesia [None]
  - Agitation [None]
  - Anxiety [None]
  - Depression [None]
  - Menopausal symptoms [None]
  - Vulvovaginal dryness [None]
  - Libido decreased [None]
  - Urinary tract disorder [None]
